FAERS Safety Report 13551289 (Version 2)
Quarter: 2017Q2

REPORT INFORMATION
  Report Type: Spontaneous
  Country: KR (occurrence: KR)
  Receive Date: 20170516
  Receipt Date: 20170522
  Transmission Date: 20170830
  Serious: Yes (Other)
  Sender: FDA-Public Use
  Company Number: KR-PFIZER INC-2017209037

PATIENT
  Age: 71 Year
  Sex: Male

DRUGS (2)
  1. NEURONTIN [Suspect]
     Active Substance: GABAPENTIN
     Indication: POST HERPETIC NEURALGIA
     Dosage: UNK
     Route: 048
  2. METHYLON /00049601/ [Concomitant]
     Indication: POST HERPETIC NEURALGIA
     Dosage: UNK
     Route: 048

REACTIONS (1)
  - Macular oedema [Recovered/Resolved]
